FAERS Safety Report 25196434 (Version 1)
Quarter: 2025Q2

REPORT INFORMATION
  Report Type: Spontaneous
  Country: US (occurrence: US)
  Receive Date: 20250415
  Receipt Date: 20250415
  Transmission Date: 20250716
  Serious: No
  Sender: MERCK SHARP AND DOHME
  Company Number: US-009507513-2271902

PATIENT
  Age: 13 Year
  Sex: Female

DRUGS (7)
  1. WINREVAIR [Suspect]
     Active Substance: SOTATERCEPT-CSRK
  2. WINREVAIR [Suspect]
     Active Substance: SOTATERCEPT-CSRK
  3. WINREVAIR [Suspect]
     Active Substance: SOTATERCEPT-CSRK
  4. WINREVAIR [Suspect]
     Active Substance: SOTATERCEPT-CSRK
  5. MACITENTAN [Concomitant]
     Active Substance: MACITENTAN
  6. TADALAFIL [Concomitant]
     Active Substance: TADALAFIL
  7. TREPROSTINIL [Concomitant]
     Active Substance: TREPROSTINIL

REACTIONS (9)
  - Decreased appetite [Unknown]
  - Dyspnoea [Unknown]
  - Epistaxis [Unknown]
  - Injection site pain [Unknown]
  - Nasal congestion [Unknown]
  - Off label use [Unknown]
  - Fatigue [Unknown]
  - Nasal inflammation [Unknown]
  - Fear of injection [Unknown]
